FAERS Safety Report 8847638 (Version 1)
Quarter: 2012Q4

REPORT INFORMATION
  Report Type: 
  Country: IN (occurrence: US)
  Receive Date: 20121018
  Receipt Date: 20121018
  Transmission Date: 20130627
  Serious: No
  Sender: FDA-Public Use
  Company Number: US-BAYER-2012-109376

PATIENT
  Sex: Female

DRUGS (1)
  1. CLIMARA [Suspect]
     Route: 062

REACTIONS (3)
  - Application site rash [Unknown]
  - Product adhesion issue [None]
  - Skin irritation [None]
